FAERS Safety Report 16776246 (Version 1)
Quarter: 2019Q3

REPORT INFORMATION
  Report Type: Spontaneous
  Country: US (occurrence: US)
  Receive Date: 20190905
  Receipt Date: 20190905
  Transmission Date: 20191005
  Serious: Yes (Other)
  Sender: FDA-Public Use
  Company Number: US-PFIZER INC-2019384078

PATIENT
  Age: 5 Year
  Sex: Male

DRUGS (2)
  1. BENZATHINE BENZYLPENICILLIN [Suspect]
     Active Substance: PENICILLIN G BENZATHINE
     Indication: PHARYNGITIS STREPTOCOCCAL
     Dosage: UNK
     Route: 030
  2. AMOXICILLIN. [Concomitant]
     Active Substance: AMOXICILLIN
     Indication: PHARYNGITIS STREPTOCOCCAL
     Dosage: UNK

REACTIONS (1)
  - Embolia cutis medicamentosa [Recovering/Resolving]
